FAERS Safety Report 8610408 (Version 3)
Quarter: 2014Q2

REPORT INFORMATION
  Report Type: Spontaneous
  Country: PT (occurrence: PT)
  Receive Date: 20120612
  Receipt Date: 20140521
  Transmission Date: 20141212
  Serious: Yes (Hospitalization, Other)
  Sender: FDA-Public Use
  Company Number: PT-CELGENEUS-130-50794-12053288

PATIENT
  Age: 68 Year
  Sex: Male

DRUGS (6)
  1. VIDAZA [Suspect]
     Indication: CHRONIC MYELOMONOCYTIC LEUKAEMIA
     Route: 058
     Dates: start: 201010
  2. PREDNISOLONE [Concomitant]
     Indication: CHRONIC MYELOMONOCYTIC LEUKAEMIA
     Dosage: 20 MILLIGRAM
     Route: 065
     Dates: start: 201101
  3. PREDNISOLONE [Concomitant]
     Dosage: 10 MILLIGRAM
     Route: 065
     Dates: start: 201103
  4. ALLOPURINOL [Concomitant]
     Indication: HYPERURICAEMIA
     Route: 065
  5. ESCITALOPRAM [Concomitant]
     Indication: DEPRESSION
     Route: 065
  6. BROMAZEPAM [Concomitant]
     Indication: DEPRESSION
     Route: 065

REACTIONS (6)
  - Urticaria [Recovered/Resolved]
  - Lower respiratory tract infection [Recovered/Resolved]
  - Atrial flutter [Recovered/Resolved]
  - Constipation [Unknown]
  - Platelet count decreased [Unknown]
  - Epistaxis [Unknown]
